FAERS Safety Report 8299343 (Version 2)
Quarter: 2016Q1

REPORT INFORMATION
  Report Type: Report from Study
  Country: GB (occurrence: GB)
  Receive Date: 20111219
  Receipt Date: 20160303
  Transmission Date: 20160526
  Serious: Yes (Death, Other)
  Sender: FDA-Public Use
  Company Number: GB-ROCHE-1021257

PATIENT

DRUGS (5)
  1. FLUDARABINE PHOSPHATE. [Suspect]
     Active Substance: FLUDARABINE PHOSPHATE
     Route: 042
  2. CYCLOPHOSPHAMIDE. [Suspect]
     Active Substance: CYCLOPHOSPHAMIDE
     Indication: MANTLE CELL LYMPHOMA
     Route: 048
  3. CYCLOPHOSPHAMIDE. [Suspect]
     Active Substance: CYCLOPHOSPHAMIDE
     Route: 042
  4. RITUXIMAB [Suspect]
     Active Substance: RITUXIMAB
     Indication: MANTLE CELL LYMPHOMA
     Dosage: DAY 1, EVERY 4 WEEKS
     Route: 042
  5. FLUDARABINE PHOSPHATE. [Suspect]
     Active Substance: FLUDARABINE PHOSPHATE
     Indication: MANTLE CELL LYMPHOMA
     Dosage: ON DAYS 1-3
     Route: 048

REACTIONS (30)
  - Sepsis [Fatal]
  - Infection [Fatal]
  - Vomiting [Unknown]
  - Diarrhoea [Unknown]
  - Hypotension [Unknown]
  - Pulmonary toxicity [Unknown]
  - Rash [Unknown]
  - Arthralgia [Unknown]
  - Stomatitis [Unknown]
  - Neoplasm [Fatal]
  - Leukopenia [Unknown]
  - Neutropenia [Unknown]
  - Anaemia [Unknown]
  - Nephropathy toxic [Unknown]
  - Hypersensitivity [Unknown]
  - Headache [Unknown]
  - Gastrointestinal toxicity [Unknown]
  - Cardiotoxicity [Fatal]
  - Nausea [Unknown]
  - Lymphoma [Fatal]
  - Fatigue [Unknown]
  - Decreased appetite [Unknown]
  - Neurotoxicity [Unknown]
  - Bronchospasm [Unknown]
  - Opportunistic infection [Fatal]
  - Thrombocytopenia [Unknown]
  - Pyrexia [Unknown]
  - Febrile neutropenia [Unknown]
  - Neutropenic sepsis [Unknown]
  - Pancytopenia [Unknown]
